FAERS Safety Report 9292284 (Version 1)
Quarter: 2013Q2

REPORT INFORMATION
  Report Type: Spontaneous
  Country: CH (occurrence: CH)
  Receive Date: 20130516
  Receipt Date: 20130516
  Transmission Date: 20140414
  Serious: Yes (Other)
  Sender: FDA-Public Use
  Company Number: PHHY2013CH047544

PATIENT
  Age: 67 Year
  Sex: Male
  Weight: 83 kg

DRUGS (5)
  1. EXJADE [Suspect]
     Indication: SERUM FERRITIN INCREASED
     Dosage: 1000 MG QD
     Route: 048
     Dates: start: 20130225, end: 20130323
  2. REVLIMID [Concomitant]
     Indication: ESSENTIAL THROMBOCYTHAEMIA
     Dosage: 10 MG, QD
     Dates: start: 20120912
  3. DIAMICRON [Concomitant]
  4. COAPROVEL [Concomitant]
  5. ASPIRIN CARDIO [Concomitant]

REACTIONS (1)
  - Cholestatic liver injury [Recovered/Resolved]
